FAERS Safety Report 9672354 (Version 2)
Quarter: 2013Q4

REPORT INFORMATION
  Report Type: Spontaneous
  Country: IT (occurrence: IT)
  Receive Date: 20131106
  Receipt Date: 20131226
  Transmission Date: 20140711
  Serious: Yes (Hospitalization)
  Sender: FDA-Public Use
  Company Number: IT-BAYER-2013-135297

PATIENT
  Age: 80 Year
  Sex: Female
  Weight: 60 kg

DRUGS (7)
  1. CARDIOASPIRIN [Suspect]
     Indication: PROPHYLAXIS
     Dosage: DAILY DOSE 1 DF
     Route: 048
     Dates: start: 20120101, end: 20130926
  2. METFORMIN [Concomitant]
     Dosage: DAILY DOSE 3 DF
     Route: 048
  3. OMEPRAZOLE [Concomitant]
     Dosage: DAILY DOSE 1 DF
     Route: 048
  4. DELTACORTENE [Concomitant]
     Dosage: DAILY DOSE 2.5 MG
     Route: 048
  5. TOTALIP [Concomitant]
     Dosage: DAILY DOSE 1 DF
     Route: 048
  6. PLAQUENIL [Concomitant]
  7. METOCAL VIT D3 [Concomitant]
     Dosage: DAILY DOSE 1 DF
     Route: 048

REACTIONS (2)
  - Subdural haematoma [Recovering/Resolving]
  - Hemiparesis [Recovered/Resolved]
